FAERS Safety Report 9131262 (Version 2)
Quarter: 2013Q2

REPORT INFORMATION
  Report Type: Report from Study
  Country: US (occurrence: US)
  Receive Date: 20130301
  Receipt Date: 20130409
  Transmission Date: 20140414
  Serious: Yes (Hospitalization)
  Sender: FDA-Public Use
  Company Number: US-US-EMD SERONO, INC.-7195711

PATIENT
  Age: 64 Year
  Sex: Female

DRUGS (3)
  1. REBIF [Suspect]
     Indication: PRODUCT USED FOR UNKNOWN INDICATION
     Route: 058
     Dates: start: 20081006
  2. REBIF [Suspect]
     Route: 058
     Dates: end: 20130122
  3. TYLENOL [Concomitant]
     Indication: PREMEDICATION

REACTIONS (6)
  - Tachycardia [Unknown]
  - Bradycardia [Unknown]
  - Chest discomfort [Unknown]
  - Hypertension [Unknown]
  - Fall [Unknown]
  - Fatigue [Unknown]
